FAERS Safety Report 4398471-2 (Version None)
Quarter: 2004Q3

REPORT INFORMATION
  Report Type: 
  Country: None (occurrence: None)
  Receive Date: 20040714
  Receipt Date: 20040714
  Transmission Date: 20050211
  Serious: Yes (Life-Threatening, Hospitalization)
  Sender: FDA-Public Use
  Company Number: None

PATIENT
  Sex: Male
  Weight: 13.9 kg

DRUGS (1)
  1. VINCRISTINE [Suspect]

REACTIONS (4)
  - ASPIRATION [None]
  - NEUTROPENIA [None]
  - RESPIRATORY DISTRESS [None]
  - URINE OUTPUT DECREASED [None]
